FAERS Safety Report 14078163 (Version 1)
Quarter: 2017Q4

REPORT INFORMATION
  Report Type: Spontaneous
  Country: US (occurrence: US)
  Receive Date: 20171011
  Receipt Date: 20171011
  Transmission Date: 20180321
  Serious: Yes (Other)
  Sender: FDA-Public Use
  Company Number: None

PATIENT
  Age: 50 Year
  Sex: Female
  Weight: 57.6 kg

DRUGS (8)
  1. NUCYNTA [Concomitant]
     Active Substance: TAPENTADOL HYDROCHLORIDE
  2. VITAMIN B12 [Concomitant]
     Active Substance: CYANOCOBALAMIN
  3. AMLODIPINE [Concomitant]
     Active Substance: AMLODIPINE BESYLATE
  4. SAVELLA [Concomitant]
     Active Substance: MILNACIPRAN HYDROCHLORIDE
  5. VITAMIN D3 [Concomitant]
     Active Substance: CHOLECALCIFEROL
  6. PROLIA [Suspect]
     Active Substance: DENOSUMAB
     Indication: OSTEOPOROSIS
     Dosage: ?          OTHER FREQUENCY:EVERY 6 MONTHS;?INTRAMUSCULAR
     Route: 030
     Dates: start: 20170623
  7. OMEGA 3 [Concomitant]
     Active Substance: OMEGA-3 FATTY ACIDS
  8. KLONOPIN [Concomitant]
     Active Substance: CLONAZEPAM

REACTIONS (23)
  - Vomiting [None]
  - Arthralgia [None]
  - Musculoskeletal stiffness [None]
  - Gastrooesophageal reflux disease [None]
  - Gait disturbance [None]
  - Headache [None]
  - Vertigo [None]
  - Flushing [None]
  - Back pain [None]
  - Fibromyalgia [None]
  - Rosacea [None]
  - Pain [None]
  - Insomnia [None]
  - Neck pain [None]
  - Dry skin [None]
  - Temporomandibular joint syndrome [None]
  - Nocturia [None]
  - Alopecia [None]
  - Skin disorder [None]
  - Condition aggravated [None]
  - Pruritus [None]
  - Pain in extremity [None]
  - Discomfort [None]

NARRATIVE: CASE EVENT DATE: 20170624
